FAERS Safety Report 7962932-7 (Version None)
Quarter: 2011Q4

REPORT INFORMATION
  Report Type: 
  Country: None (occurrence: None)
  Receive Date: 20111207
  Receipt Date: 20111130
  Transmission Date: 20120403
  Serious: Yes (Other)
  Sender: FDA-Public Use
  Company Number: US-ASTRAZENECA-2008UW11650

PATIENT
  Age: 80 Year
  Sex: Male
  Weight: 68 kg

DRUGS (16)
  1. PACERON [Concomitant]
  2. SPIRIVA [Concomitant]
  3. CRESTOR [Suspect]
     Route: 048
     Dates: start: 20080401
  4. METOPROLOL TARTRATE [Concomitant]
     Route: 048
  5. CRESTOR [Suspect]
     Indication: BLOOD CHOLESTEROL INCREASED
     Route: 048
     Dates: start: 20080101, end: 20090301
  6. CRESTOR [Suspect]
     Indication: HYPERLIPIDAEMIA
     Route: 048
     Dates: start: 20080101, end: 20090301
  7. CRESTOR [Suspect]
     Route: 048
     Dates: start: 20080101, end: 20080801
  8. GLUCOTROL XL [Concomitant]
     Route: 048
  9. CRESTOR [Suspect]
     Route: 048
     Dates: start: 20080401
  10. NEXIUM [Concomitant]
     Route: 048
  11. GLUCOTROL XL [Concomitant]
  12. CENTRUM [Concomitant]
  13. CRESTOR [Suspect]
     Route: 048
     Dates: start: 20080101, end: 20080801
  14. METFORMIN HCL [Concomitant]
     Route: 048
  15. ASPIRIN [Concomitant]
     Route: 048
  16. LISINOPRIL [Concomitant]
     Route: 048

REACTIONS (10)
  - MYALGIA [None]
  - DIZZINESS [None]
  - PAIN IN EXTREMITY [None]
  - NAUSEA [None]
  - ASTHENIA [None]
  - HEADACHE [None]
  - CEREBROVASCULAR ACCIDENT [None]
  - HAIR COLOUR CHANGES [None]
  - ABDOMINAL PAIN [None]
  - PAIN [None]
